FAERS Safety Report 6203088-0 (Version None)
Quarter: 2009Q2

REPORT INFORMATION
  Report Type: 
  Country: None (occurrence: None)
  Receive Date: 20090521
  Receipt Date: 20090521
  Transmission Date: 20091009
  Serious: Yes (Life-Threatening, Hospitalization, Other)
  Sender: FDA-Public Use
  Company Number: None

PATIENT
  Age: 15 Year
  Sex: Male
  Weight: 45.3597 kg

DRUGS (1)
  1. NAPROXEN [Suspect]
     Indication: MIGRAINE
     Dosage: 200MG 6-8 HRS PO
     Route: 048
     Dates: start: 20081114, end: 20081118

REACTIONS (7)
  - ANAEMIA [None]
  - DIARRHOEA [None]
  - FEELING ABNORMAL [None]
  - GINGIVAL DISCOLOURATION [None]
  - HAEMATEMESIS [None]
  - ULCER [None]
  - ULCER HAEMORRHAGE [None]
